FAERS Safety Report 7958129-7 (Version None)
Quarter: 2011Q4

REPORT INFORMATION
  Report Type: 
  Country: None (occurrence: None)
  Receive Date: 20111201
  Receipt Date: 20111201
  Transmission Date: 20120403
  Serious: Yes (Hospitalization, Other)
  Sender: FDA-Public Use
  Company Number: AUR-APL-2011-05966

PATIENT
  Age: 52 Year
  Sex: Male
  Weight: 89 kg

DRUGS (5)
  1. ASPIRIN [Concomitant]
  2. LANSOPRAZOLE [Concomitant]
  3. SIMVASTATIN [Suspect]
     Indication: HYPERCHOLESTEROLAEMIA
     Dosage: 40 MG, ORAL
     Route: 048
     Dates: start: 20111101, end: 20111104
  4. NITROGLYCERIN [Concomitant]
  5. LISINOPRIL [Concomitant]

REACTIONS (2)
  - AMNESIA [None]
  - HEADACHE [None]
